FAERS Safety Report 18840076 (Version 1)
Quarter: 2021Q1

REPORT INFORMATION
  Report Type: Spontaneous
  Country: BR (occurrence: BR)
  Receive Date: 20210204
  Receipt Date: 20210204
  Transmission Date: 20210419
  Serious: Yes (Other)
  Sender: FDA-Public Use
  Company Number: BR-JNJFOC-20210205476

PATIENT
  Age: 26 Year
  Sex: Female

DRUGS (1)
  1. TRAMADOL HYDROCHLORIDE. [Suspect]
     Active Substance: TRAMADOL HYDROCHLORIDE
     Indication: PROCEDURAL PAIN
     Dosage: 200 MILLIGRAM, ONCE
     Route: 048
     Dates: start: 202101, end: 202101

REACTIONS (9)
  - Adverse event [Unknown]
  - Restlessness [Unknown]
  - Insomnia [Unknown]
  - Hyperaemia [Unknown]
  - Nausea [Unknown]
  - Abdominal pain [Unknown]
  - Somnolence [Unknown]
  - Incorrect dose administered [Unknown]
  - Ileus paralytic [Unknown]

NARRATIVE: CASE EVENT DATE: 202101
